FAERS Safety Report 14422680 (Version 2)
Quarter: 2018Q1

REPORT INFORMATION
  Report Type: Spontaneous
  Country: JP (occurrence: JP)
  Receive Date: 20180123
  Receipt Date: 20180131
  Transmission Date: 20180509
  Serious: Yes (Other)
  Sender: FDA-Public Use
  Company Number: JP-ROCHE-1982795

PATIENT
  Age: 53 Year
  Sex: Female

DRUGS (3)
  1. PACLITAXEL. [Concomitant]
     Active Substance: PACLITAXEL
     Indication: BREAST CANCER
     Dosage: 3 WEEKS ADMINISTRATION FOLLOWED BY 1 WEEK REST
     Route: 041
  2. AVASTIN [Suspect]
     Active Substance: BEVACIZUMAB
     Indication: BREAST CANCER
     Route: 041
  3. TAMOXIFEN [Concomitant]
     Active Substance: TAMOXIFEN

REACTIONS (5)
  - Pleurisy [Recovering/Resolving]
  - Pneumonia [Recovering/Resolving]
  - Infection [Recovering/Resolving]
  - Atelectasis [Recovering/Resolving]
  - Impaired healing [Recovered/Resolved]

NARRATIVE: CASE EVENT DATE: 201610
